FAERS Safety Report 20798031 (Version 4)
Quarter: 2022Q3

REPORT INFORMATION
  Report Type: Other
  Country: IN (occurrence: None)
  Receive Date: 20220506
  Receipt Date: 20220927
  Transmission Date: 20221026
  Serious: Yes (Other)
  Sender: FDA-Public Use
  Company Number: IN-ROCHE-3089991

PATIENT
  Age: 64 Year
  Sex: Male

DRUGS (1)
  1. TECENTRIQ [Suspect]
     Active Substance: ATEZOLIZUMAB
     Indication: Small cell lung cancer
     Route: 042
     Dates: start: 20220416

REACTIONS (6)
  - Diarrhoea [Unknown]
  - Oedema peripheral [Unknown]
  - Pleural effusion [Unknown]
  - Prostatomegaly [Unknown]
  - Oropharyngeal pain [Unknown]
  - Pharyngitis [Unknown]

NARRATIVE: CASE EVENT DATE: 20220607
